FAERS Safety Report 22186365 (Version 1)
Quarter: 2023Q2

REPORT INFORMATION
  Report Type: Spontaneous
  Country: US (occurrence: None)
  Receive Date: 20230406
  Receipt Date: 20230406
  Transmission Date: 20230722
  Serious: Yes (Hospitalization)
  Sender: FDA-Public Use
  Company Number: None

PATIENT
  Age: 54 Year
  Sex: Male

DRUGS (15)
  1. MYCOPHENOLIC ACID [Suspect]
     Active Substance: MYCOPHENOLIC ACID
     Indication: Renal transplant
     Dosage: FREQUENCY : TWICE A DAY;?
     Route: 048
     Dates: start: 20210714
  2. FENOFIBRATE 160MG TABLETS [Concomitant]
  3. LOSARTAN POTASSIUM [Concomitant]
     Active Substance: LOSARTAN POTASSIUM
  4. METOPROLOL TARTRATE 75MG TABLETS [Concomitant]
  5. AMLODIPINE [Concomitant]
     Active Substance: AMLODIPINE BESYLATE
  6. FENOFIBRATE 160MG TABLETS [Concomitant]
  7. LOSARTAN POTASSIUM [Concomitant]
     Active Substance: LOSARTAN POTASSIUM
  8. METOPROLOL TARTRATE 75MG TABLETS [Concomitant]
  9. AMLODIPINE BESYLATE [Concomitant]
     Active Substance: AMLODIPINE BESYLATE
  10. ASPIRIN 81 MG CHEWABLE TABLETS [Concomitant]
  11. ATORVASTATIN CALCIUM [Concomitant]
     Active Substance: ATORVASTATIN CALCIUM
  12. BUMETANIDE 0.5MG TABLETS [Concomitant]
  13. METOPROLOL TARTRATE 50MG TABLETS [Concomitant]
  14. MULTIVITAMIN TABLETS [Concomitant]
  15. VITAMIN D3 2000UNIT CAPSULES [Concomitant]

REACTIONS (2)
  - Seizure [None]
  - Cerebrovascular accident [None]

NARRATIVE: CASE EVENT DATE: 20230301
